FAERS Safety Report 13437861 (Version 1)
Quarter: 2017Q2

REPORT INFORMATION
  Report Type: Spontaneous
  Country: US (occurrence: US)
  Receive Date: 20170412
  Receipt Date: 20170412
  Transmission Date: 20170830
  Serious: No
  Sender: FDA-Public Use
  Company Number: US-SA-2017SA007709

PATIENT
  Age: 75 Year
  Sex: Female

DRUGS (1)
  1. ALLEGRA ALLERGY [Suspect]
     Active Substance: FEXOFENADINE HYDROCHLORIDE
     Indication: MULTIPLE ALLERGIES
     Route: 048

REACTIONS (6)
  - Diplopia [Unknown]
  - Condition aggravated [Unknown]
  - Eye swelling [Unknown]
  - Lip swelling [Unknown]
  - Mouth swelling [Unknown]
  - Drug ineffective [Unknown]
